FAERS Safety Report 15560626 (Version 1)
Quarter: 2018Q4

REPORT INFORMATION
  Report Type: Spontaneous
  Country: US (occurrence: US)
  Receive Date: 20181029
  Receipt Date: 20181029
  Transmission Date: 20190205
  Serious: Yes (Other)
  Sender: FDA-Public Use
  Company Number: None

PATIENT
  Age: 47 Year
  Sex: Female
  Weight: 50.85 kg

DRUGS (1)
  1. WALGREENS CAPSAICIN HOT [Suspect]
     Active Substance: CAPSAICIN
     Indication: BACK PAIN
     Dosage: ?          QUANTITY:1 PATCH(ES);?
     Route: 062
     Dates: start: 20181023, end: 20181023

REACTIONS (4)
  - Application site erythema [None]
  - Application site irritation [None]
  - Application site pruritus [None]
  - Application site swelling [None]

NARRATIVE: CASE EVENT DATE: 20181023
